FAERS Safety Report 15361859 (Version 6)
Quarter: 2018Q4

REPORT INFORMATION
  Report Type: Report from Study
  Country: JP (occurrence: JP)
  Receive Date: 20180907
  Receipt Date: 20181123
  Transmission Date: 20190204
  Serious: Yes (Death, Hospitalization, Other)
  Sender: FDA-Public Use
  Company Number: JP-BRISTOL-MYERS SQUIBB COMPANY-BMS-2018-083170

PATIENT
  Age: 12 Year
  Sex: Female
  Weight: 30 kg

DRUGS (1)
  1. ABATACEPT [Suspect]
     Active Substance: ABATACEPT
     Indication: JUVENILE IDIOPATHIC ARTHRITIS
     Dosage: UNK
     Route: 041
     Dates: start: 20180820

REACTIONS (7)
  - Pyrexia [Unknown]
  - Pneumonia [Fatal]
  - Septic shock [Unknown]
  - Vomiting [Unknown]
  - C-reactive protein increased [Unknown]
  - Cough [Unknown]
  - Lung disorder [Unknown]

NARRATIVE: CASE EVENT DATE: 20180905
